FAERS Safety Report 16891553 (Version 2)
Quarter: 2021Q2

REPORT INFORMATION
  Report Type: Spontaneous
  Country: US (occurrence: US)
  Receive Date: 20191007
  Receipt Date: 20210420
  Transmission Date: 20210716
  Serious: No
  Sender: FDA-Public Use
  Company Number: US-VERTEX PHARMACEUTICALS-2019-009528

PATIENT
  Age: 34 Year
  Sex: Female

DRUGS (6)
  1. CAYSTON [Concomitant]
     Active Substance: AZTREONAM
  2. LEVALBUTEROL [LEVOSALBUTAMOL] [Concomitant]
     Active Substance: LEVALBUTEROL
  3. KALYDECO [Suspect]
     Active Substance: IVACAFTOR
     Indication: CYSTIC FIBROSIS
     Dosage: 150 MG TABLET, BID
     Route: 048
     Dates: start: 20190122, end: 20191210
  4. KALYDECO [Suspect]
     Active Substance: IVACAFTOR
     Dosage: 150 MG TABLET, BID
     Route: 048
     Dates: start: 20171214, end: 20180320
  5. SODIUM CHLORIDE. [Concomitant]
     Active Substance: SODIUM CHLORIDE
  6. PULMOZYME [Concomitant]
     Active Substance: DORNASE ALFA

REACTIONS (1)
  - Infective pulmonary exacerbation of cystic fibrosis [Unknown]

NARRATIVE: CASE EVENT DATE: 20190901
